FAERS Safety Report 17181107 (Version 1)
Quarter: 2019Q4

REPORT INFORMATION
  Report Type: Report from Study
  Country: None (occurrence: CO)
  Receive Date: 20191220
  Receipt Date: 20191220
  Transmission Date: 20200122
  Serious: Yes (Death, Hospitalization, Other)
  Sender: FDA-Public Use
  Company Number: CO-ABBVIE-17K-036-3070924-00

PATIENT
  Age: 73 Year
  Sex: Male
  Weight: 57 kg

DRUGS (1)
  1. IMBRUVICA [Suspect]
     Active Substance: IBRUTINIB
     Indication: MANTLE CELL LYMPHOMA
     Route: 048
     Dates: start: 20170124

REACTIONS (4)
  - Inflammation [Not Recovered/Not Resolved]
  - Urinary retention [Fatal]
  - Respiratory failure [Fatal]
  - Laboratory test abnormal [Fatal]

NARRATIVE: CASE EVENT DATE: 20170428
